FAERS Safety Report 7536648-5 (Version None)
Quarter: 2011Q2

REPORT INFORMATION
  Report Type: 
  Country: None (occurrence: None)
  Receive Date: 20110609
  Receipt Date: 20110524
  Transmission Date: 20111010
  Serious: Yes (Hospitalization)
  Sender: FDA-Public Use
  Company Number: A0788278A

PATIENT
  Age: 48 Year
  Sex: Male
  Weight: 97.3 kg

DRUGS (9)
  1. ASPIRIN [Concomitant]
  2. LOPRESSOR [Concomitant]
  3. AVANDAMET [Suspect]
     Indication: DIABETES MELLITUS
     Route: 048
     Dates: start: 20050105, end: 20070501
  4. PLAVIX [Concomitant]
  5. VICODIN [Concomitant]
  6. VIAGRA [Concomitant]
  7. CRESTOR [Concomitant]
  8. PLETAL [Concomitant]
  9. ZOCOR [Concomitant]

REACTIONS (2)
  - MYOCARDIAL INFARCTION [None]
  - CORONARY ARTERY DISEASE [None]
